FAERS Safety Report 9657660 (Version 7)
Quarter: 2014Q4

REPORT INFORMATION
  Report Type: Spontaneous
  Country: JP (occurrence: None)
  Receive Date: 20131029
  Receipt Date: 20141203
  Transmission Date: 20150529
  Serious: Yes (Life-Threatening, Disabling)
  Sender: FDA-Public Use
  Company Number: ABR_01220_2013

PATIENT
  Age: 63 Year
  Sex: Male

DRUGS (10)
  1. MICARDIS [Concomitant]
     Active Substance: TELMISARTAN
  2. GLIADEL [Suspect]
     Active Substance: CARMUSTINE
     Indication: MALIGNANT GLIOMA
     Dosage: (8 DF 1X. [61.6 MG] INTRACEREBRAL)
     Dates: start: 20130924, end: 20130927
  3. BEZATOL [Concomitant]
     Active Substance: BEZAFIBRATE
  4. AMINOLEVULINIC ACID HYDROCHLORIDE [Concomitant]
     Active Substance: AMINOLEVULINIC ACID HYDROCHLORIDE
  5. GASTER [Concomitant]
     Active Substance: FAMOTIDINE
  6. DEPAKENE [Concomitant]
     Active Substance: VALPROIC ACID
  7. AMLODIN [Concomitant]
     Active Substance: AMLODIPINE BESYLATE
  8. ALEVIATIN /00017401/ [Concomitant]
     Active Substance: PHENYTOIN SODIUM
  9. RINDERON /00008501/ [Concomitant]
  10. EPADEL-S [Concomitant]
     Active Substance: ETHYL ICOSAPENTATE\ICOSAPENT

REACTIONS (8)
  - Haemorrhage [None]
  - Pneumonia [None]
  - Altered state of consciousness [None]
  - Cerebrospinal fluid retention [None]
  - Cerebral infarction [None]
  - Hemiplegia [None]
  - Deformity of orbit [None]
  - Brain oedema [None]

NARRATIVE: CASE EVENT DATE: 20130926
